FAERS Safety Report 4485138-5 (Version None)
Quarter: 2004Q4

REPORT INFORMATION
  Report Type: 
  Country: None (occurrence: None)
  Receive Date: 20041026
  Receipt Date: 20031121
  Transmission Date: 20050328
  Serious: No
  Sender: FDA-Public Use
  Company Number: US-BRISTOL-MYERS SQUIBB COMPANY-12441259

PATIENT
  Sex: Male

DRUGS (6)
  1. GLUCOPHAGE XR [Suspect]
     Indication: DIABETES MELLITUS
     Route: 048
     Dates: start: 20031003
  2. NITROGLYCERIN [Concomitant]
  3. METOPROLOL [Concomitant]
  4. NITROSTAT [Concomitant]
  5. PRILOSEC [Concomitant]
  6. LIPITOR [Concomitant]

REACTIONS (2)
  - DISORIENTATION [None]
  - MEDICATION ERROR [None]
